FAERS Safety Report 10362706 (Version 4)
Quarter: 2014Q3

REPORT INFORMATION
  Report Type: Spontaneous
  Country: DE (occurrence: DE)
  Receive Date: 20140805
  Receipt Date: 20140905
  Transmission Date: 20150326
  Serious: Yes (Hospitalization)
  Sender: FDA-Public Use
  Company Number: DE-AMGEN-DEUSP2014058581

PATIENT
  Age: 35 Year
  Sex: Female
  Weight: 70 kg

DRUGS (6)
  1. ENDOXAN                            /00021101/ [Concomitant]
     Active Substance: CYCLOPHOSPHAMIDE
     Indication: BREAST CANCER
     Dosage: 3700 MG, Q2W
     Route: 042
     Dates: start: 20140701, end: 20140721
  2. EPIRUBICIN [Concomitant]
     Active Substance: EPIRUBICIN
     Indication: BREAST CANCER
     Dosage: 280 MG, Q2W
     Route: 042
     Dates: start: 20140408, end: 20140506
  3. DEXA                               /00008501/ [Concomitant]
     Indication: ANTIEMETIC SUPPORTIVE CARE
     Dosage: 8-20 MG, Q2W
     Route: 042
     Dates: start: 20140408
  4. NEULASTA [Suspect]
     Active Substance: PEGFILGRASTIM
     Indication: BREAST CANCER
     Dosage: 6 MG, UNK
     Route: 058
     Dates: start: 20140724
  5. GRANISETRON [Concomitant]
     Active Substance: GRANISETRON
     Indication: ANTIEMETIC SUPPORTIVE CARE
     Dosage: 1 MG, Q2W
     Route: 042
     Dates: start: 20140408
  6. PACLITAXEL. [Concomitant]
     Active Substance: PACLITAXEL
     Indication: BREAST CANCER
     Dosage: 420 MG, Q2W
     Route: 042
     Dates: start: 20140520, end: 20140617

REACTIONS (3)
  - Platelet count decreased [Recovered/Resolved]
  - Leukocytosis [Unknown]
  - Leukopenia [Not Recovered/Not Resolved]

NARRATIVE: CASE EVENT DATE: 20140725
